FAERS Safety Report 22248441 (Version 1)
Quarter: 2023Q2

REPORT INFORMATION
  Report Type: Spontaneous
  Country: US (occurrence: US)
  Receive Date: 20230425
  Receipt Date: 20230425
  Transmission Date: 20230721
  Serious: No
  Sender: FDA-Public Use
  Company Number: US-BIOGEN-2023BI01201314

PATIENT
  Sex: Male

DRUGS (8)
  1. TECFIDERA [Suspect]
     Active Substance: DIMETHYL FUMARATE
     Indication: Multiple sclerosis
     Route: 050
  2. AMPYRA [Concomitant]
     Active Substance: DALFAMPRIDINE
     Indication: Product used for unknown indication
     Route: 050
  3. OCREVUS [Concomitant]
     Active Substance: OCRELIZUMAB
     Route: 050
  4. AMANTADINE [Concomitant]
     Active Substance: AMANTADINE
     Route: 050
  5. GABAPENTIN [Concomitant]
     Active Substance: GABAPENTIN
     Route: 050
  6. GEMTESA [Concomitant]
     Active Substance: VIBEGRON
     Route: 050
  7. AMLODIPINE [Concomitant]
     Active Substance: AMLODIPINE BESYLATE
     Route: 050
  8. SOLIFENACIN [Concomitant]
     Active Substance: SOLIFENACIN
     Route: 050

REACTIONS (1)
  - Drug ineffective [Unknown]
